FAERS Safety Report 20584167 (Version 1)
Quarter: 2022Q1

REPORT INFORMATION
  Report Type: Spontaneous
  Country: US (occurrence: US)
  Receive Date: 20220311
  Receipt Date: 20220311
  Transmission Date: 20220423
  Serious: Yes (Hospitalization)
  Sender: FDA-Public Use
  Company Number: US-MIRM-000325

PATIENT
  Age: 1 Year
  Sex: Female

DRUGS (10)
  1. LIVMARLI [Suspect]
     Active Substance: MARALIXIBAT CHLORIDE
     Indication: Cholestatic pruritus
     Route: 048
     Dates: start: 20220118
  2. 1328777 (GLOBALC3Sep19): Ursodiol [Concomitant]
     Indication: Product used for unknown indication
  3. 1328870 (GLOBALC3Sep19): Vit D [Concomitant]
  4. 1328916 (GLOBALC3Sep19): Vit K [Concomitant]
     Indication: Product used for unknown indication
  5. 3641461 (GLOBALC3Sep19): Aquadeks [Concomitant]
     Indication: Product used for unknown indication
  6. 1328307 (GLOBALC3Sep19): Baking soda [Concomitant]
     Indication: Product used for unknown indication
  7. 1259193 (GLOBALC3Sep19): Benadryl [Concomitant]
     Indication: Product used for unknown indication
  8. 1262928 (GLOBALC3Sep19): Calcitriol [Concomitant]
  9. 3756802 (GLOBALC3Sep19): Calcium with vitamin D [Concomitant]
     Indication: Product used for unknown indication
  10. 2356610 (GLOBALC3Sep19): Calcium carbonate [Concomitant]
     Indication: Product used for unknown indication

REACTIONS (1)
  - Transplant [Not Recovered/Not Resolved]
